FAERS Safety Report 5370790-2 (Version None)
Quarter: 2007Q2

REPORT INFORMATION
  Report Type: 
  Country: None (occurrence: None)
  Receive Date: 20070626
  Receipt Date: 20070615
  Transmission Date: 20071010
  Serious: Yes (Hospitalization)
  Sender: FDA-Public Use
  Company Number: B0475732A

PATIENT
  Sex: Female
  Weight: 91 kg

DRUGS (5)
  1. COMBIVIR [Suspect]
     Indication: HIV INFECTION
     Dosage: 1TAB TWICE PER DAY
     Route: 048
     Dates: end: 20070430
  2. KALETRA [Suspect]
     Indication: HIV INFECTION
     Dosage: 2TAB TWICE PER DAY
     Route: 048
     Dates: start: 20040101, end: 20070526
  3. INVIRASE [Suspect]
     Indication: HIV INFECTION
     Dosage: 2CAP TWICE PER DAY
     Route: 048
     Dates: start: 20070430, end: 20070526
  4. SPASFON [Concomitant]
     Route: 065
     Dates: start: 20070301
  5. TARDYFERON B9 [Concomitant]
     Route: 065
     Dates: start: 20070301

REACTIONS (9)
  - ALBUMINURIA [None]
  - ANAEMIA [None]
  - CHOLESTASIS [None]
  - DRUG EXPOSURE DURING PREGNANCY [None]
  - HEPATOCELLULAR DAMAGE [None]
  - PLATELET COUNT DECREASED [None]
  - PREMATURE LABOUR [None]
  - TRANSAMINASES INCREASED [None]
  - VAGINAL CANDIDIASIS [None]
